FAERS Safety Report 8135342-X (Version None)
Quarter: 2012Q1

REPORT INFORMATION
  Report Type: 
  Country: None (occurrence: None)
  Receive Date: 20120214
  Receipt Date: 20120124
  Transmission Date: 20120608
  Serious: Yes (Hospitalization)
  Sender: FDA-Public Use
  Company Number: US-ROCHE-1008566

PATIENT
  Age: 52 Year
  Sex: Female
  Weight: 59.2 kg

DRUGS (4)
  1. PACLITAXEL [Suspect]
     Indication: OVARIAN EPITHELIAL CANCER
     Route: 033
     Dates: start: 20110707
  2. CISPLATIN [Suspect]
     Indication: OVARIAN EPITHELIAL CANCER
     Route: 033
     Dates: start: 20110707
  3. AVASTIN [Suspect]
     Indication: OVARIAN EPITHELIAL CANCER
     Dosage: BEGINNING WITH CYCLE 2
     Route: 042
     Dates: start: 20110707
  4. PACLITAXEL [Suspect]
     Route: 042

REACTIONS (4)
  - NAUSEA [None]
  - VOMITING [None]
  - INTERNATIONAL NORMALISED RATIO INCREASED [None]
  - SMALL INTESTINAL OBSTRUCTION [None]
